FAERS Safety Report 5162002-X (Version None)
Quarter: 2006Q4

REPORT INFORMATION
  Report Type: 
  Country: None (occurrence: None)
  Receive Date: 20061121
  Receipt Date: 20061108
  Transmission Date: 20070319
  Serious: Yes (Other)
  Sender: FDA-Public Use
  Company Number: 2006114747

PATIENT
  Sex: Female

DRUGS (1)
  1. DOSTINEX [Suspect]
     Indication: HYPERPROLACTINAEMIA
     Dosage: 0.25 MG, 2 IN 1 WK, ORAL
     Route: 048
     Dates: start: 20060701

REACTIONS (4)
  - BREAST MASS [None]
  - HEADACHE [None]
  - OESOPHAGITIS [None]
  - PITUITARY TUMOUR BENIGN [None]
